FAERS Safety Report 5210962-0 (Version None)
Quarter: 2007Q1

REPORT INFORMATION
  Report Type: 
  Country: None (occurrence: None)
  Receive Date: 20070117
  Receipt Date: 20070105
  Transmission Date: 20070707
  Serious: Yes (Other)
  Sender: FDA-Public Use
  Company Number: US-PFIZER INC-2007002708

PATIENT
  Sex: Female
  Weight: 101.6 kg

DRUGS (3)
  1. NEURONTIN [Suspect]
     Indication: ARTHRALGIA
     Dates: start: 20040101, end: 20061201
  2. ZYRTEC [Concomitant]
  3. RITALIN [Concomitant]

REACTIONS (4)
  - ABNORMAL DREAMS [None]
  - COLECTOMY [None]
  - DRUG INEFFECTIVE [None]
  - HEPATIC CYST [None]
